FAERS Safety Report 25069664 (Version 1)
Quarter: 2025Q1

REPORT INFORMATION
  Report Type: Spontaneous
  Country: FR (occurrence: FR)
  Receive Date: 20250312
  Receipt Date: 20250312
  Transmission Date: 20250408
  Serious: Yes (Other)
  Sender: MYLAN
  Company Number: FR-MYLANLABS-2025M1020735

PATIENT

DRUGS (10)
  1. ERYTHROMYCIN [Suspect]
     Active Substance: ERYTHROMYCIN
     Indication: Allergy test
  2. ERYTHROMYCIN [Suspect]
     Active Substance: ERYTHROMYCIN
  3. CLARITHROMYCIN [Suspect]
     Active Substance: CLARITHROMYCIN
     Indication: Antibiotic therapy
  4. CLARITHROMYCIN [Suspect]
     Active Substance: CLARITHROMYCIN
     Indication: Skin test
  5. SPIRAMYCIN [Concomitant]
     Active Substance: SPIRAMYCIN
     Indication: Skin test
  6. ROXITHROMYCIN [Concomitant]
     Active Substance: ROXITHROMYCIN
     Indication: Skin test
  7. PRISTINAMYCIN [Concomitant]
     Active Substance: PRISTINAMYCIN
     Indication: Skin test
  8. TELITHROMYCIN [Concomitant]
     Active Substance: TELITHROMYCIN
     Indication: Skin test
  9. JOSAMYCIN [Concomitant]
     Active Substance: JOSAMYCIN
     Indication: Skin test
  10. AZITHROMYCIN [Concomitant]
     Active Substance: AZITHROMYCIN
     Indication: Skin test

REACTIONS (3)
  - Type I hypersensitivity [Unknown]
  - Urticaria [Unknown]
  - Cross sensitivity reaction [Unknown]
